FAERS Safety Report 13042247 (Version 1)
Quarter: 2016Q4

REPORT INFORMATION
  Report Type: Spontaneous
  Country: DE (occurrence: DE)
  Receive Date: 20161219
  Receipt Date: 20161219
  Transmission Date: 20170207
  Serious: Yes (Other)
  Sender: FDA-Public Use
  Company Number: DE-PFIZER INC-2016154468

PATIENT
  Age: 78 Year
  Sex: Female

DRUGS (4)
  1. FOLIC ACID. [Concomitant]
     Active Substance: FOLIC ACID
     Dosage: 24 HOURS AFTER INJECTION
  2. METHOTREXATE (METHOTREXATE SODIUM) [Suspect]
     Active Substance: METHOTREXATE SODIUM
     Dosage: 7.5 MG, UNK
  3. MARCUMAR [Concomitant]
     Active Substance: PHENPROCOUMON
     Dosage: UNK
  4. METHOTREXATE (METHOTREXATE SODIUM) [Suspect]
     Active Substance: METHOTREXATE SODIUM
     Dosage: UNK

REACTIONS (6)
  - Blindness [Unknown]
  - Sunburn [Recovering/Resolving]
  - Inflammation [Recovering/Resolving]
  - Pain [Recovering/Resolving]
  - Ocular vascular disorder [Unknown]
  - Alopecia [Recovering/Resolving]

NARRATIVE: CASE EVENT DATE: 2015
